FAERS Safety Report 4704016-7 (Version None)
Quarter: 2005Q2

REPORT INFORMATION
  Report Type: 
  Country: None (occurrence: None)
  Receive Date: 20050628
  Receipt Date: 20050614
  Transmission Date: 20051028
  Serious: No
  Sender: FDA-Public Use
  Company Number: USA0506100559

PATIENT
  Age: 10 Year
  Sex: Female

DRUGS (7)
  1. STRATTERA [Suspect]
     Dosage: 25 MG DAY
     Dates: start: 20030201, end: 20050601
  2. ADDERALL [Concomitant]
  3. WELLBUTRIN [Concomitant]
  4. CONCERTA [Concomitant]
  5. .. [Concomitant]
  6. .. [Concomitant]
  7. .. [Concomitant]

REACTIONS (4)
  - ALANINE AMINOTRANSFERASE INCREASED [None]
  - ASPARTATE AMINOTRANSFERASE INCREASED [None]
  - MALAISE [None]
  - PLATELET COUNT INCREASED [None]
